FAERS Safety Report 16651615 (Version 1)
Quarter: 2019Q3

REPORT INFORMATION
  Report Type: Spontaneous
  Country: US (occurrence: US)
  Receive Date: 20190731
  Receipt Date: 20190731
  Transmission Date: 20191004
  Serious: No
  Sender: FDA-Public Use
  Company Number: US-JNJFOC-20190742261

PATIENT
  Sex: Female

DRUGS (1)
  1. STELARA [Suspect]
     Active Substance: USTEKINUMAB
     Indication: CROHN^S DISEASE
     Route: 042
     Dates: start: 20190710

REACTIONS (4)
  - Arthralgia [Unknown]
  - Migraine [Unknown]
  - Night sweats [Unknown]
  - Productive cough [Unknown]

NARRATIVE: CASE EVENT DATE: 20190729
